FAERS Safety Report 19249309 (Version 2)
Quarter: 2021Q2

REPORT INFORMATION
  Report Type: Spontaneous
  Country: CO (occurrence: CO)
  Receive Date: 20210513
  Receipt Date: 20210623
  Transmission Date: 20210717
  Serious: Yes (Disabling, Other)
  Sender: FDA-Public Use
  Company Number: CO-AMGEN-COLSP2021073005

PATIENT
  Age: 77 Year
  Sex: Male

DRUGS (1)
  1. ENBREL [Suspect]
     Active Substance: ETANERCEPT
     Indication: ANKYLOSING SPONDYLITIS
     Dosage: 50 MG, WEEKLY (LOCAL WAY AS EVERY 8 DAYS)
     Route: 058
     Dates: start: 2018, end: 20201114

REACTIONS (3)
  - Product prescribing issue [Unknown]
  - Emotional disorder [Recovered/Resolved]
  - Ankylosing spondylitis [Recovered/Resolved]

NARRATIVE: CASE EVENT DATE: 20201114
